FAERS Safety Report 6325979-2 (Version None)
Quarter: 2009Q3

REPORT INFORMATION
  Report Type: 
  Country: None (occurrence: None)
  Receive Date: 20090818
  Receipt Date: 20090420
  Transmission Date: 20100115
  Serious: No
  Sender: FDA-Public Use
  Company Number: WAES 0904USA03197

PATIENT
  Age: 74 Year
  Sex: Female

DRUGS (4)
  1. JANUVIA [Suspect]
     Dosage: PO
     Route: 048
     Dates: start: 20081001
  2. ACTANOL [Concomitant]
  3. CRESTOR [Concomitant]
  4. PROTONIX [Concomitant]

REACTIONS (1)
  - WEIGHT INCREASED [None]
